FAERS Safety Report 9815289 (Version 1)
Quarter: 2014Q1

REPORT INFORMATION
  Report Type: Spontaneous
  Country: ES (occurrence: ES)
  Receive Date: 20140114
  Receipt Date: 20140114
  Transmission Date: 20141002
  Serious: Yes (Other)
  Sender: FDA-Public Use
  Company Number: ES-ORION CORPORATION ORION PHARMA-ENT 2014-0005

PATIENT
  Age: 85 Year
  Sex: Male

DRUGS (8)
  1. ENTACAPONE [Suspect]
     Indication: PARKINSON^S DISEASE
     Route: 048
  2. L-DOPA [Suspect]
     Indication: PARKINSON^S DISEASE
     Route: 048
  3. ROPINIROLE [Suspect]
     Indication: PARKINSON^S DISEASE
     Route: 048
  4. APOMORPHINE [Suspect]
     Indication: PARKINSON^S DISEASE
     Route: 048
  5. CLONAZEPAM [Concomitant]
     Route: 065
  6. RIVASTIGMINE [Concomitant]
     Route: 065
  7. CLOZAPINE [Concomitant]
     Route: 065
  8. SERTRALINE [Concomitant]
     Route: 065

REACTIONS (3)
  - Hypersexuality [Recovered/Resolved]
  - Compulsive shopping [Recovered/Resolved]
  - Stereotypy [Recovering/Resolving]
